FAERS Safety Report 5281860-1 (Version None)
Quarter: 2007Q1

REPORT INFORMATION
  Report Type: 
  Country: None (occurrence: None)
  Receive Date: 20070330
  Receipt Date: 20070327
  Transmission Date: 20070707
  Serious: Yes (Other)
  Sender: FDA-Public Use
  Company Number: DE-BRISTOL-MYERS SQUIBB COMPANY-13728761

PATIENT

DRUGS (4)
  1. PACLITAXEL [Suspect]
  2. CARBOPLATIN [Suspect]
  3. ETOPOSIDE [Suspect]
  4. IFOSFAMIDE [Suspect]

REACTIONS (6)
  - BONE MARROW FAILURE [None]
  - DISEASE PROGRESSION [None]
  - INFECTION [None]
  - METASTASES TO CENTRAL NERVOUS SYSTEM [None]
  - RENAL FAILURE [None]
  - STOMATITIS [None]
